FAERS Safety Report 8482848 (Version 3)
Quarter: 2012Q4

REPORT INFORMATION
  Report Type: 
  Country: US (occurrence: US)
  Receive Date: 20120329
  Receipt Date: 20121114
  Transmission Date: 20130627
  Serious: Yes (Hospitalization, Other)
  Sender: FDA-Public Use
  Company Number: US-ACTELION-A-US2012-62860

PATIENT
  Age: 30 Year
  Sex: Female

DRUGS (3)
  1. TRACLEER [Suspect]
     Indication: PULMONARY ARTERIAL HYPERTENSION
     Dosage: UNK
     Route: 048
     Dates: start: 200903, end: 20120531
  2. TRACLEER [Suspect]
     Dosage: UNK
     Route: 048
     Dates: start: 20120802
  3. REVATIO [Concomitant]

REACTIONS (5)
  - Device related infection [Unknown]
  - Abortion spontaneous [Unknown]
  - Pregnancy [Unknown]
  - Vaginal haemorrhage [Unknown]
  - Female sterilisation [Unknown]
